FAERS Safety Report 25519860 (Version 3)
Quarter: 2025Q4

REPORT INFORMATION
  Report Type: Spontaneous
  Country: US (occurrence: US)
  Receive Date: 20250704
  Receipt Date: 20251208
  Transmission Date: 20260118
  Serious: Yes (Other)
  Sender: SANOFI AVENTIS
  Company Number: US-SA-2025SA188696

PATIENT
  Age: 75 Year
  Sex: Female

DRUGS (2)
  1. DUPIXENT [Suspect]
     Active Substance: DUPILUMAB
     Indication: Asthma
     Dosage: 300 MG, QOW
     Route: 058
  2. PREDNISONE [Concomitant]
     Active Substance: PREDNISONE

REACTIONS (11)
  - Glaucoma [Unknown]
  - Knee arthroplasty [Unknown]
  - Intraocular pressure increased [Unknown]
  - Illness [Unknown]
  - COVID-19 [Unknown]
  - Cough [Unknown]
  - Injection site indentation [Unknown]
  - Dyspnoea [Recovering/Resolving]
  - Herpes zoster [Unknown]
  - Neurogenic cough [Unknown]
  - Therapeutic response shortened [Unknown]

NARRATIVE: CASE EVENT DATE: 20240101
